FAERS Safety Report 19298563 (Version 4)
Quarter: 2021Q3

REPORT INFORMATION
  Report Type: Report from Study
  Country: FR (occurrence: FR)
  Receive Date: 20210524
  Receipt Date: 20210924
  Transmission Date: 20211014
  Serious: Yes (Other)
  Sender: FDA-Public Use
  Company Number: NVSC2021FR115339

PATIENT
  Sex: Female
  Weight: 68.7 kg

DRUGS (1)
  1. BYL719 [Suspect]
     Active Substance: ALPELISIB
     Indication: PIK3CA RELATED OVERGROWTH SPECTRUM
     Dosage: 2X125 MG, QD
     Route: 048
     Dates: start: 20210218

REACTIONS (2)
  - Hyperglycaemia [Not Recovered/Not Resolved]
  - Xerophthalmia [Not Recovered/Not Resolved]

NARRATIVE: CASE EVENT DATE: 20210218
